FAERS Safety Report 8934422 (Version 2)
Quarter: 2012Q4

REPORT INFORMATION
  Report Type: Report from Study
  Country: DE (occurrence: DE)
  Receive Date: 20121128
  Receipt Date: 20121214
  Transmission Date: 20130627
  Serious: Yes (Hospitalization, Other)
  Sender: FDA-Public Use
  Company Number: DE-TEVA-371653GER

PATIENT
  Age: 46 Year
  Sex: Female
  Weight: 70 kg

DRUGS (7)
  1. LIPOSOMAL DOXORUBICIN [Suspect]
     Indication: BREAST CANCER
     Route: 042
     Dates: start: 20120917, end: 20121128
  2. PACLITAXEL [Suspect]
     Indication: BREAST CANCER
     Route: 042
     Dates: start: 20120917, end: 20121128
  3. BEVACIZUMAB [Suspect]
     Indication: BREAST CANCER
     Route: 042
     Dates: start: 20120917, end: 20121128
  4. NOVAMIN [Concomitant]
     Dates: start: 20121124, end: 20121126
  5. EMSER [Concomitant]
     Dates: start: 20121126, end: 20121126
  6. E153 [Concomitant]
     Dates: start: 20121120, end: 20121120
  7. FRAGMIN [Concomitant]
     Dates: start: 20121119, end: 20121129

REACTIONS (2)
  - Pyrexia [Recovered/Resolved]
  - Palmar-plantar erythrodysaesthesia syndrome [Unknown]
